FAERS Safety Report 14174359 (Version 1)
Quarter: 2017Q4

REPORT INFORMATION
  Report Type: Spontaneous
  Country: BR (occurrence: BR)
  Receive Date: 20171109
  Receipt Date: 20171109
  Transmission Date: 20180321
  Serious: Yes (Congenital Anomaly, Other)
  Sender: FDA-Public Use
  Company Number: BR-JNJFOC-20171030877

PATIENT
  Sex: Male
  Weight: 14 kg

DRUGS (4)
  1. TOPAMAX [Suspect]
     Active Substance: TOPIRAMATE
     Indication: BINGE EATING
     Route: 064
     Dates: start: 201708
  2. TOPAMAX [Suspect]
     Active Substance: TOPIRAMATE
     Indication: BINGE EATING
     Dosage: DOSE WAS DECREASED TO 25 MG PER WEEK
     Route: 064
  3. SYNTHROID [Suspect]
     Active Substance: LEVOTHYROXINE SODIUM
     Indication: PRODUCT USED FOR UNKNOWN INDICATION
     Route: 064
  4. TOPAMAX [Suspect]
     Active Substance: TOPIRAMATE
     Indication: BINGE EATING
     Route: 064
     Dates: start: 2005, end: 201405

REACTIONS (7)
  - Developmental delay [Unknown]
  - Speech disorder developmental [Unknown]
  - Respiratory disorder neonatal [Unknown]
  - Muscular weakness [Unknown]
  - Chromosome analysis abnormal [Unknown]
  - Pulmonary malformation [Unknown]
  - Foetal exposure during pregnancy [Recovered/Resolved]
